FAERS Safety Report 18601367 (Version 9)
Quarter: 2021Q2

REPORT INFORMATION
  Report Type: Report from Study
  Country: CN (occurrence: CN)
  Receive Date: 20201210
  Receipt Date: 20210507
  Transmission Date: 20210717
  Serious: Yes (Hospitalization)
  Sender: FDA-Public Use
  Company Number: NVSC2020CN326492

PATIENT
  Age: 65 Year
  Sex: Female
  Weight: 56 kg

DRUGS (28)
  1. DABRAFENIB [Suspect]
     Active Substance: DABRAFENIB
     Dosage: 100 MG, BID
     Route: 048
     Dates: start: 20201229, end: 20210108
  2. LIGUSTRAZINE HYDROCHLORIDE [Concomitant]
     Active Substance: LIGUSTRAZINE HYDROCHLORIDE
     Indication: PROPHYLAXIS
     Dosage: UNK
     Route: 065
     Dates: start: 20201215, end: 20210114
  3. DABRAFENIB [Suspect]
     Active Substance: DABRAFENIB
     Indication: NON-SMALL CELL LUNG CANCER METASTATIC
     Dosage: 100 MG, BID
     Route: 048
     Dates: start: 20200924, end: 20201103
  4. DABRAFENIB [Suspect]
     Active Substance: DABRAFENIB
     Dosage: 150 UNK
     Route: 048
     Dates: end: 20210421
  5. CEFTRIAXONE SODIUM. [Concomitant]
     Active Substance: CEFTRIAXONE SODIUM
     Indication: INFECTION PROPHYLAXIS
     Dosage: UNK
     Route: 065
     Dates: start: 20201215, end: 20210114
  6. HERBAL NOS [Concomitant]
     Active Substance: HERBALS
     Indication: SUPPLEMENTATION THERAPY
     Dosage: UNK
     Route: 065
     Dates: start: 20201215, end: 20210114
  7. OXYCODONE HYDROCHLORIDE. [Concomitant]
     Active Substance: OXYCODONE HYDROCHLORIDE
     Indication: ARTHRALGIA
     Dosage: UNK
     Route: 065
     Dates: start: 20201215
  8. FOLIC ACID. [Concomitant]
     Active Substance: FOLIC ACID
     Indication: ANAEMIA
     Dosage: UNK
     Route: 065
     Dates: start: 20201215, end: 20210101
  9. BICYCLOL [Concomitant]
     Active Substance: BICYCLOL
     Dosage: 25 MG, TID
     Route: 048
     Dates: start: 20210114
  10. IBUPROFEN. [Concomitant]
     Active Substance: IBUPROFEN
     Indication: PYREXIA
     Dosage: UNK
     Route: 065
     Dates: start: 20201029, end: 20201102
  11. INSULIN ASPART [Concomitant]
     Active Substance: INSULIN ASPART
     Indication: DIABETES MELLITUS
     Dosage: UNK
     Route: 065
     Dates: start: 20201201
  12. ROXADUSTAT. [Concomitant]
     Active Substance: ROXADUSTAT
     Indication: ANAEMIA
     Dosage: UNK
     Route: 065
     Dates: start: 20201215, end: 20210101
  13. DABRAFENIB [Suspect]
     Active Substance: DABRAFENIB
     Dosage: 100 MG, BID
     Route: 048
     Dates: start: 20200924, end: 20210128
  14. TRAMETINIB [Suspect]
     Active Substance: TRAMETINIB
     Indication: NON-SMALL CELL LUNG CANCER METASTATIC
     Dosage: 2 MG, QD
     Route: 048
     Dates: start: 20200925, end: 20210128
  15. MOXIFLOXACIN HYDROCHLORIDE. [Concomitant]
     Active Substance: MOXIFLOXACIN HYDROCHLORIDE
     Indication: INFECTION PROPHYLAXIS
     Dosage: UNK
     Route: 065
     Dates: start: 20201215, end: 20210114
  16. GLIMEPIRIDE. [Concomitant]
     Active Substance: GLIMEPIRIDE
     Indication: DIABETES MELLITUS
     Dosage: UNK
     Route: 065
     Dates: start: 20030101, end: 20201201
  17. INSULIN GLARGINE [Concomitant]
     Active Substance: INSULIN GLARGINE
     Indication: DIABETES MELLITUS
     Dosage: UNK
     Route: 065
     Dates: start: 20190101, end: 20210107
  18. SITAGLIPTIN PHOSPHATE [Concomitant]
     Active Substance: SITAGLIPTIN PHOSPHATE
     Indication: DIABETES MELLITUS
     Dosage: UNK
     Route: 065
     Dates: start: 20190101, end: 20201201
  19. AMLODIPIN/ATORVASTATIN [Concomitant]
     Active Substance: AMLODIPINE BESYLATE\ATORVASTATIN CALCIUM
     Indication: HYPERTENSION
     Dosage: UNK
     Route: 065
     Dates: start: 20170101
  20. ACARBOSE. [Concomitant]
     Active Substance: ACARBOSE
     Indication: DIABETES MELLITUS
     Dosage: UNK
     Route: 065
     Dates: start: 20030101, end: 20201201
  21. IRON;POLYSACCHARIDE?IRON COMPLEX [Concomitant]
     Indication: ANAEMIA
     Dosage: UNK
     Route: 065
     Dates: start: 20201215, end: 20210101
  22. TYLENOL [Concomitant]
     Active Substance: ACETAMINOPHEN
     Indication: PROPHYLAXIS
     Dosage: UNK
     Route: 065
  23. DABRAFENIB [Suspect]
     Active Substance: DABRAFENIB
     Dosage: 50 MG, BID
     Route: 048
     Dates: start: 20210128, end: 20210128
  24. TRAMETINIB [Suspect]
     Active Substance: TRAMETINIB
     Dosage: 2 MG, QD
     Route: 048
     Dates: start: 20201230, end: 20210108
  25. TRAMETINIB [Suspect]
     Active Substance: TRAMETINIB
     Dosage: 1 MG, QD
     Route: 065
     Dates: start: 20210125, end: 20210128
  26. TRAMETINIB [Suspect]
     Active Substance: TRAMETINIB
     Dosage: 2 MG, QD
     Route: 048
     Dates: end: 20210421
  27. BICYCLOL [Concomitant]
     Active Substance: BICYCLOL
     Indication: GENERAL PHYSICAL CONDITION
     Dosage: UNK
     Route: 065
     Dates: start: 20201215, end: 20210317
  28. ESTAZOLAM. [Concomitant]
     Active Substance: ESTAZOLAM
     Indication: INSOMNIA
     Dosage: UNK
     Route: 065
     Dates: start: 20201126

REACTIONS (2)
  - Blood creatinine increased [Recovered/Resolved]
  - Blood creatinine increased [Recovered/Resolved]

NARRATIVE: CASE EVENT DATE: 20201103
